FAERS Safety Report 9001088 (Version 1)
Quarter: 2013Q1

REPORT INFORMATION
  Report Type: Report from Study
  Country: US (occurrence: US)
  Receive Date: 20130107
  Receipt Date: 20130107
  Transmission Date: 20140127
  Serious: No
  Sender: FDA-Public Use
  Company Number: US-VERTEX PHARMACEUTICALS INC.-2013-000169

PATIENT
  Sex: Male

DRUGS (4)
  1. VX-950 (TELAPREVIR) [Suspect]
     Indication: HEPATITIS C
     Dosage: UNK
     Route: 048
     Dates: start: 20120422, end: 20120717
  2. RIBAVIRIN [Suspect]
     Indication: HEPATITIS C
     Dosage: 4 DF, QD
     Dates: start: 20120422
  3. RIBAVIRIN [Suspect]
     Dosage: 6 DF, QD
  4. PEGASYS [Suspect]
     Indication: HEPATITIS C
     Dosage: UNK
     Dates: start: 20120422

REACTIONS (1)
  - Fatigue [Not Recovered/Not Resolved]
